FAERS Safety Report 13722306 (Version 2)
Quarter: 2017Q3

REPORT INFORMATION
  Report Type: Other
  Country: US (occurrence: US)
  Receive Date: 20170706
  Receipt Date: 20170731
  Transmission Date: 20171127
  Serious: Yes (Hospitalization)
  Sender: FDA-Public Use
  Company Number: US-VERTEX PHARMACEUTICALS-2017-003312

PATIENT
  Age: 18 Year
  Sex: Male

DRUGS (28)
  1. FLONASE [Concomitant]
     Active Substance: FLUTICASONE PROPIONATE
     Dosage: 2 SPRAYS TO EACH NOSTRIL, BID
     Route: 045
  2. ALBUTEROL. [Concomitant]
     Active Substance: ALBUTEROL
     Dosage: 1 AMPULE, QID
     Route: 055
  3. ORKAMBI [Suspect]
     Active Substance: IVACAFTOR\LUMACAFTOR
     Indication: CYSTIC FIBROSIS
     Dosage: 2 (200/125MG EACH) DF, BID
     Route: 048
     Dates: start: 2015
  4. EMLA [Concomitant]
     Active Substance: LIDOCAINE\PRILOCAINE
     Indication: PAIN
     Dosage: APPLY TOPICALLY TO AFFECTED AREA, PRN
     Route: 061
  5. POTASSIUM CHLORIDE. [Concomitant]
     Active Substance: POTASSIUM CHLORIDE
     Dosage: 2 DF, EVERY FRIDAY AND SUNDAY
     Route: 048
     Dates: start: 20170526
  6. TOBI [Concomitant]
     Active Substance: TOBRAMYCIN
     Dosage: 5 ML, BID
     Route: 055
  7. COLISTIN SULFATE [Concomitant]
     Active Substance: COLISTIN SULFATE
     Dosage: 150 MG, BID
     Route: 055
  8. NAPROXEN. [Concomitant]
     Active Substance: NAPROXEN
  9. SPIRIVA [Concomitant]
     Active Substance: TIOTROPIUM BROMIDE MONOHYDRATE
     Dosage: 18 MG, QD
     Route: 055
  10. DYMISTA [Concomitant]
     Active Substance: AZELASTINE HYDROCHLORIDE\FLUTICASONE PROPIONATE
     Dosage: 1 SPRAY, BID
     Route: 045
  11. ZEGERID [Concomitant]
     Active Substance: OMEPRAZOLE\SODIUM BICARBONATE
     Dosage: 1 DF, BID
     Route: 048
  12. XYZAL [Concomitant]
     Active Substance: LEVOCETIRIZINE DIHYDROCHLORIDE
     Dosage: 1 DF, QD
     Route: 048
  13. DULERA [Concomitant]
     Active Substance: FORMOTEROL FUMARATE DIHYDRATE\MOMETASONE FUROATE
     Dosage: 2 FUFFS, BID
     Route: 055
  14. MAXIPIME [Concomitant]
     Active Substance: CEFEPIME HYDROCHLORIDE
     Dosage: 2 G, TID
     Route: 042
  15. CULTURELLE DIGESTIVE HEALTH [Concomitant]
     Dosage: 1 DF, BID
     Route: 048
  16. AQUADEKS [Concomitant]
     Active Substance: MINERALS\VITAMINS
     Dosage: 1 DF, QD
     Route: 048
  17. PULMOZYME [Concomitant]
     Active Substance: DORNASE ALFA
     Dosage: 1 DF, QD
     Route: 055
  18. MERREM [Concomitant]
     Active Substance: MEROPENEM
     Dosage: 1000 MG, TID
     Route: 042
  19. NAPROSYN [Concomitant]
     Active Substance: NAPROXEN
     Dosage: 1 DF, QOD
     Route: 048
  20. MIRALAX [Concomitant]
     Active Substance: POLYETHYLENE GLYCOL 3350
     Dosage: 2 CAPFULS IN 8 OZ LIQUID, DAILY, PRN
     Route: 048
  21. CREON [Concomitant]
     Active Substance: PANCRELIPASE AMYLASE\PANCRELIPASE LIPASE\PANCRELIPASE PROTEASE
     Dosage: 5 TABS WITH MEALS, 4 TABS WITH SNACKS
  22. ZITHROMAX [Concomitant]
     Active Substance: AZITHROMYCIN DIHYDRATE
     Dosage: 1 DF, ON MONDAY, WEDNESDAY AND FRIDAY
     Route: 048
  23. ZYVOX [Concomitant]
     Active Substance: LINEZOLID
     Dosage: 600 MG, TID
     Route: 042
  24. PRILOSEC [Concomitant]
     Active Substance: OMEPRAZOLE MAGNESIUM
     Dosage: 1 DF, BID
     Route: 048
  25. VITAMIN D3 [Concomitant]
     Active Substance: CHOLECALCIFEROL
     Dosage: 2000 UT, QD
     Route: 048
  26. MOBIC [Concomitant]
     Active Substance: MELOXICAM
     Dosage: 15 MG, QOD
     Route: 048
  27. THERMOTABS [Concomitant]
     Dosage: 2 DF, BID
  28. ZANTAC [Concomitant]
     Active Substance: RANITIDINE HYDROCHLORIDE
     Dosage: 150 MG, BID
     Route: 048

REACTIONS (3)
  - Blood glucose increased [Recovering/Resolving]
  - Infective pulmonary exacerbation of cystic fibrosis [Recovering/Resolving]
  - Acute sinusitis [Unknown]

NARRATIVE: CASE EVENT DATE: 2017
